FAERS Safety Report 22321151 (Version 2)
Quarter: 2023Q2

REPORT INFORMATION
  Report Type: Spontaneous
  Country: US (occurrence: US)
  Receive Date: 20230515
  Receipt Date: 20230515
  Transmission Date: 20230721
  Serious: No
  Sender: FDA-Public Use
  Company Number: US-GSK-US2023AMR065259

PATIENT
  Sex: Male

DRUGS (3)
  1. BENLYSTA [Suspect]
     Active Substance: BELIMUMAB
     Indication: Haemophagocytic lymphohistiocytosis
     Dosage: 200 MG/ML, WE
     Route: 058
  2. BENLYSTA [Suspect]
     Active Substance: BELIMUMAB
     Indication: Autoinflammatory disease
  3. BENLYSTA [Suspect]
     Active Substance: BELIMUMAB
     Indication: Connective tissue disorder

REACTIONS (9)
  - Injection site erythema [Unknown]
  - Pain in extremity [Not Recovered/Not Resolved]
  - Malaise [Unknown]
  - Sticky skin [Unknown]
  - Pallor [Unknown]
  - Injection site rash [Unknown]
  - Injection site swelling [Unknown]
  - Product use issue [Unknown]
  - Product use in unapproved indication [Unknown]
